FAERS Safety Report 7560176-4 (Version None)
Quarter: 2011Q2

REPORT INFORMATION
  Report Type: 
  Country: None (occurrence: None)
  Receive Date: 20110621
  Receipt Date: 20110614
  Transmission Date: 20111010
  Serious: Yes (Hospitalization)
  Sender: FDA-Public Use
  Company Number: A0931486A

PATIENT
  Age: 64 Year
  Sex: Male

DRUGS (11)
  1. TOPROL-XL [Concomitant]
  2. UNKNOWN [Concomitant]
  3. MORPHINE SULFATE [Concomitant]
  4. RISPERIDONE [Concomitant]
  5. CLONAZEPAM [Concomitant]
  6. MIRTAZAPINE [Concomitant]
  7. ZOFRAN [Concomitant]
  8. DEXAMETHASONE [Concomitant]
  9. LEVOTHYROXINE SODIUM [Concomitant]
  10. VOTRIENT [Suspect]
     Dosage: 800MG PER DAY
     Route: 048
     Dates: start: 20110502
  11. LUNESTA [Concomitant]

REACTIONS (4)
  - VOMITING [None]
  - GAIT DISTURBANCE [None]
  - LETHARGY [None]
  - URINARY TRACT INFECTION [None]
